FAERS Safety Report 24544879 (Version 1)
Quarter: 2024Q4

REPORT INFORMATION
  Report Type: Spontaneous
  Country: CN (occurrence: CN)
  Receive Date: 20241024
  Receipt Date: 20241024
  Transmission Date: 20250115
  Serious: Yes (Other)
  Sender: PFIZER
  Company Number: CN-PFIZER INC-PV202400135832

PATIENT
  Age: 55 Year
  Sex: Female
  Weight: 41 kg

DRUGS (1)
  1. XALKORI [Suspect]
     Active Substance: CRIZOTINIB
     Indication: Lung neoplasm malignant
     Dosage: 250 MG, 2X/DAY
     Route: 048
     Dates: start: 20240808

REACTIONS (4)
  - Face oedema [Recovering/Resolving]
  - Oedema [Recovering/Resolving]
  - Productive cough [Recovering/Resolving]
  - Sensation of foreign body [Recovering/Resolving]
